FAERS Safety Report 25004102 (Version 2)
Quarter: 2025Q1

REPORT INFORMATION
  Report Type: Spontaneous
  Country: US (occurrence: US)
  Receive Date: 20250224
  Receipt Date: 20250313
  Transmission Date: 20250409
  Serious: No
  Sender: TEVA
  Company Number: US-TEVA-VS-3294701

PATIENT
  Age: 69 Year
  Sex: Male

DRUGS (1)
  1. AUSTEDO [Suspect]
     Active Substance: DEUTETRABENAZINE
     Indication: Product used for unknown indication
     Dosage: 9 MG: 2 TABLETS BY MOUTH TWICE DAILY
     Route: 048

REACTIONS (4)
  - Dysarthria [Unknown]
  - Product use issue [Unknown]
  - Jaw disorder [Unknown]
  - Product use issue [Unknown]

NARRATIVE: CASE EVENT DATE: 20250201
